FAERS Safety Report 22365948 (Version 1)
Quarter: 2023Q2

REPORT INFORMATION
  Report Type: Spontaneous
  Country: GB (occurrence: GB)
  Receive Date: 20230525
  Receipt Date: 20230525
  Transmission Date: 20230722
  Serious: Yes (Hospitalization)
  Sender: FDA-Public Use
  Company Number: GB-GALDERMA-GB2023007392

PATIENT

DRUGS (1)
  1. BENZOYL PEROXIDE [Suspect]
     Active Substance: BENZOYL PEROXIDE
     Indication: Acne
     Dosage: 1 DOSAGE FORM, ON FACE
     Route: 061
     Dates: start: 20230511, end: 20230511

REACTIONS (10)
  - Rash erythematous [Not Recovered/Not Resolved]
  - Application site warmth [Unknown]
  - Application site discomfort [Unknown]
  - Application site pustules [Unknown]
  - Application site vesicles [Unknown]
  - Application site scab [Unknown]
  - Skin tightness [Unknown]
  - Application site swelling [Unknown]
  - Application site pain [Unknown]
  - Application site burn [Not Recovered/Not Resolved]

NARRATIVE: CASE EVENT DATE: 20230501
